FAERS Safety Report 14780533 (Version 10)
Quarter: 2018Q4

REPORT INFORMATION
  Report Type: Spontaneous
  Country: US (occurrence: US)
  Receive Date: 20180419
  Receipt Date: 20181015
  Transmission Date: 20190204
  Serious: Yes (Congenital Anomaly, Other)
  Sender: FDA-Public Use
  Company Number: PHEH2018US013698

PATIENT
  Sex: Male

DRUGS (5)
  1. ONDANSETRON HYDROCHLORIDE. [Suspect]
     Active Substance: ONDANSETRON HYDROCHLORIDE
     Indication: FOETAL EXPOSURE DURING PREGNANCY
     Route: 064
  2. ONDANSETRON DR REDDY [Suspect]
     Active Substance: ONDANSETRON
     Indication: FOETAL EXPOSURE DURING PREGNANCY
     Dosage: MOTHER DOSE: 8 MG PRN
     Route: 064
  3. ZOFRAN [Suspect]
     Active Substance: ONDANSETRON HYDROCHLORIDE
     Indication: FOETAL EXPOSURE DURING PREGNANCY
     Dosage: MOTHER DOSE: 4 MG, Q6H
     Route: 064
  4. ZOFRAN ODT [Suspect]
     Active Substance: ONDANSETRON HYDROCHLORIDE
     Indication: FOETAL EXPOSURE DURING PREGNANCY
     Dosage: MOTHER DOSE: 8 MG, Q6H
     Route: 064
  5. ZOFRAN [Suspect]
     Active Substance: ONDANSETRON HYDROCHLORIDE
     Indication: FOETAL EXPOSURE DURING PREGNANCY
     Route: 064

REACTIONS (61)
  - Adrenal insufficiency [Unknown]
  - Renal failure [Unknown]
  - Urinary tract infection [Unknown]
  - Viral infection [Unknown]
  - Shone complex [Unknown]
  - Congenital mitral valve stenosis [Unknown]
  - Heart disease congenital [Unknown]
  - Hypoplastic left heart syndrome [Unknown]
  - Acute respiratory distress syndrome [Unknown]
  - Mitral valve incompetence [Unknown]
  - Foetal exposure during pregnancy [Unknown]
  - Chest pain [Unknown]
  - Tachypnoea [Unknown]
  - Language disorder [Unknown]
  - Mitral valve hypoplasia [Unknown]
  - Left atrial enlargement [Unknown]
  - Developmental coordination disorder [Unknown]
  - Ascites [Unknown]
  - Injury [Unknown]
  - Gastroenteritis viral [Unknown]
  - Pulmonary hypertension [Unknown]
  - Premature baby [Unknown]
  - Left ventricular hypertrophy [Unknown]
  - Hypertension [Unknown]
  - Tonsillitis [Unknown]
  - Cardiomegaly [Unknown]
  - Arthropod bite [Unknown]
  - Headache [Unknown]
  - Right ventricular enlargement [Unknown]
  - Diarrhoea neonatal [Unknown]
  - Failure to thrive [Unknown]
  - Upper respiratory tract infection [Unknown]
  - Lymphadenopathy mediastinal [Unknown]
  - Dehydration [Unknown]
  - Ventricular septal defect [Unknown]
  - Atrial septal defect [Unknown]
  - Deafness [Unknown]
  - Pyrexia [Unknown]
  - Eczema [Unknown]
  - Otitis media [Unknown]
  - Neck pain [Unknown]
  - Coarctation of the aorta [Unknown]
  - Aortic valve incompetence [Unknown]
  - Cardiogenic shock [Recovering/Resolving]
  - Respiratory failure [Unknown]
  - Pneumonia [Unknown]
  - Cardiac failure congestive [Unknown]
  - Bronchitis [Unknown]
  - Dyspnoea [Unknown]
  - Lactose intolerance [Unknown]
  - Rash [Unknown]
  - Hypersensitivity [Unknown]
  - Neck injury [Unknown]
  - Left-to-right cardiac shunt [Unknown]
  - Tricuspid valve incompetence [Unknown]
  - Atelectasis neonatal [Unknown]
  - Cyanosis [Unknown]
  - Cough [Unknown]
  - Viral upper respiratory tract infection [Unknown]
  - Skin laceration [Unknown]
  - Dermatophytosis [Unknown]
